FAERS Safety Report 19636743 (Version 1)
Quarter: 2021Q3

REPORT INFORMATION
  Report Type: Other
  Country: US (occurrence: US)
  Receive Date: 20210730
  Receipt Date: 20210730
  Transmission Date: 20211014
  Serious: Yes (Death, Other)
  Sender: FDA-Public Use
  Company Number: US-ROCHE-2879209

PATIENT

DRUGS (3)
  1. TTI 621 [Suspect]
     Active Substance: ONTORPACEPT
     Indication: HAEMATOLOGICAL MALIGNANCY
     Dosage: AT DOSES OF 0.05, 0.1, 0.3, 1, 3, AND 10 MG/KG FOR 3 WEEKS
     Route: 042
  2. NIVOLUMAB [Suspect]
     Active Substance: NIVOLUMAB
     Indication: HAEMATOLOGICAL MALIGNANCY
     Route: 065
  3. RITUXIMAB. [Suspect]
     Active Substance: RITUXIMAB
     Indication: HAEMATOLOGICAL MALIGNANCY
     Route: 041

REACTIONS (11)
  - Diarrhoea [Unknown]
  - Thrombocytopenia [Recovered/Resolved]
  - Neutropenia [Unknown]
  - Pneumonia [Fatal]
  - Sepsis [Fatal]
  - Infusion related reaction [Unknown]
  - Vomiting [Unknown]
  - Leukopenia [Unknown]
  - Hypotension [Unknown]
  - Epistaxis [Unknown]
  - Anaemia [Unknown]
